FAERS Safety Report 6180064-8 (Version None)
Quarter: 2009Q2

REPORT INFORMATION
  Report Type: 
  Country: None (occurrence: None)
  Receive Date: 20090501
  Receipt Date: 20090416
  Transmission Date: 20091009
  Serious: Yes (Hospitalization)
  Sender: FDA-Public Use
  Company Number: CIP09000949

PATIENT
  Age: 66 Year
  Sex: Female

DRUGS (9)
  1. ACTONEL [Suspect]
     Dosage: 35 MG ONCE A WEEK, ORAL
     Route: 048
  2. ACTONEL [Suspect]
     Dosage: 150 MG MONTHLY, ORAL
     Route: 048
     Dates: start: 20081001
  3. BYSTOLIC [Suspect]
     Indication: VENTRICULAR EXTRASYSTOLES
  4. DYAZIDE [Concomitant]
  5. BENICAR [Concomitant]
  6. COUMADIN [Concomitant]
  7. PREDNISONE TAB [Concomitant]
  8. VITAMINS NOS (VITAMINS NOS) [Concomitant]
  9. FOLIC ACID [Concomitant]

REACTIONS (11)
  - ABDOMINAL DISCOMFORT [None]
  - BLOOD PRESSURE DECREASED [None]
  - CARDIAC DISORDER [None]
  - CHEST PAIN [None]
  - DYSPNOEA [None]
  - HEART RATE DECREASED [None]
  - HEART RATE INCREASED [None]
  - HEART RATE IRREGULAR [None]
  - MUSCULOSKELETAL CHEST PAIN [None]
  - PALPITATIONS [None]
  - VENTRICULAR EXTRASYSTOLES [None]
